FAERS Safety Report 9226033 (Version 1)
Quarter: 2013Q2

REPORT INFORMATION
  Report Type: Spontaneous
  Country: US (occurrence: US)
  Receive Date: 20130411
  Receipt Date: 20130411
  Transmission Date: 20140414
  Serious: No
  Sender: FDA-Public Use
  Company Number: US-ASTELLAS-2012US005735

PATIENT
  Sex: 0

DRUGS (1)
  1. PROTOPIC [Suspect]
     Indication: LICHEN PLANUS
     Dosage: UNK
     Route: 048
     Dates: start: 201206

REACTIONS (6)
  - Off label use [Unknown]
  - Incorrect route of drug administration [Unknown]
  - Lip swelling [Recovered/Resolved]
  - Oral discomfort [Recovered/Resolved]
  - Burning sensation mucosal [Recovered/Resolved]
  - Oedema mouth [Recovered/Resolved]
